FAERS Safety Report 4908473-2 (Version None)
Quarter: 2006Q1

REPORT INFORMATION
  Report Type: 
  Country: None (occurrence: None)
  Receive Date: 20060210
  Receipt Date: 20050725
  Transmission Date: 20060701
  Serious: No
  Sender: FDA-Public Use
  Company Number: US-GLAXOSMITHKLINE-A0567527A

PATIENT
  Age: 54 Year
  Sex: Female

DRUGS (4)
  1. PAXIL CR [Suspect]
     Indication: IRRITABLE BOWEL SYNDROME
     Dosage: 12.5MG PER DAY
     Route: 048
     Dates: start: 20050722
  2. ATACAND [Concomitant]
     Route: 065
  3. OMEGA 3 FISH OIL [Concomitant]
  4. RED YEAST RICE [Concomitant]

REACTIONS (3)
  - FEELING ABNORMAL [None]
  - HEADACHE [None]
  - INSOMNIA [None]
